FAERS Safety Report 4762912-9 (Version None)
Quarter: 2005Q3

REPORT INFORMATION
  Report Type: 
  Country: None (occurrence: None)
  Receive Date: 20050907
  Receipt Date: 20050831
  Transmission Date: 20060218
  Serious: Yes (Other)
  Sender: FDA-Public Use
  Company Number: PHNU2005DE03010

PATIENT
  Sex: Female

DRUGS (1)
  1. ZOMETA [Suspect]
     Indication: BREAST CANCER METASTATIC
     Dosage: 4 MG, QMO
     Route: 042

REACTIONS (4)
  - IMPAIRED HEALING [None]
  - ORAL SURGERY [None]
  - OSTEOMYELITIS [None]
  - TOOTH EXTRACTION [None]
